FAERS Safety Report 9216661 (Version 1)
Quarter: 2013Q2

REPORT INFORMATION
  Report Type: Spontaneous
  Country: US (occurrence: US)
  Receive Date: 20130408
  Receipt Date: 20130408
  Transmission Date: 20140414
  Serious: No
  Sender: FDA-Public Use
  Company Number: US-PFIZER INC-2013105829

PATIENT
  Age: 90 Year
  Sex: Male

DRUGS (8)
  1. AMIODARONE HCL [Suspect]
     Dosage: UNK
  2. AMLODIPINE BESILATE [Suspect]
     Dosage: UNK
  3. METOPROLOL TARTRATE [Suspect]
     Dosage: UNK
  4. BENAZEPRIL HCL [Suspect]
     Dosage: UNK
  5. QUINAPRIL HCL [Suspect]
     Dosage: UNK
  6. RAMIPRIL [Suspect]
     Dosage: UNK
  7. BUSPIRONE [Suspect]
     Dosage: UNK
  8. LABETALOL [Suspect]
     Dosage: UNK

REACTIONS (1)
  - Drug hypersensitivity [Unknown]
